FAERS Safety Report 14735355 (Version 2)
Quarter: 2019Q2

REPORT INFORMATION
  Report Type: Spontaneous
  Country: US (occurrence: US)
  Receive Date: 20180409
  Receipt Date: 20190502
  Transmission Date: 20190711
  Serious: No
  Sender: FDA-Public Use
  Company Number: US-RETROPHIN, INC.-2018RTN00012

PATIENT
  Age: 2 Year
  Sex: Male
  Weight: 17.8 kg

DRUGS (3)
  1. CHOLBAM [Suspect]
     Active Substance: CHOLIC ACID
     Dosage: 100 MG, 2X/DAY
     Dates: start: 201803
  2. CHOLBAM [Suspect]
     Active Substance: CHOLIC ACID
     Indication: INBORN ERROR IN PRIMARY BILE ACID SYNTHESIS
     Dosage: 200 MG, ONCE
     Dates: start: 201711, end: 201711
  3. CHOLBAM [Suspect]
     Active Substance: CHOLIC ACID
     Indication: INBORN ERROR IN PRIMARY BILE ACID SYNTHESIS
     Dosage: 50 MG, 2X/DAY
     Dates: start: 201504, end: 201711

REACTIONS (2)
  - Rash [Recovered/Resolved]
  - Inappropriate schedule of product administration [Recovered/Resolved]

NARRATIVE: CASE EVENT DATE: 201711
